FAERS Safety Report 5327570-3 (Version None)
Quarter: 2007Q2

REPORT INFORMATION
  Report Type: 
  Country: None (occurrence: None)
  Receive Date: 20070517
  Receipt Date: 20070112
  Transmission Date: 20071010
  Serious: Yes (Hospitalization)
  Sender: FDA-Public Use
  Company Number: US-JNJFOC-20070103721

PATIENT
  Age: 40 Year
  Sex: Female

DRUGS (6)
  1. TRAMADOL HCL [Suspect]
     Indication: INTENTIONAL DRUG MISUSE
     Route: 065
  2. CARISOPRODOL [Suspect]
     Indication: INTENTIONAL DRUG MISUSE
     Route: 065
  3. SEDATIVE [Suspect]
     Indication: INTENTIONAL DRUG MISUSE
     Route: 065
  4. ANTICONVULSANT [Suspect]
     Indication: INTENTIONAL DRUG MISUSE
     Route: 065
  5. COCAINE [Concomitant]
     Route: 065
  6. MUSCLE RELAXANT [Concomitant]
     Route: 065

REACTIONS (4)
  - ASPIRATION [None]
  - INTENTIONAL OVERDOSE [None]
  - RESTLESSNESS [None]
  - SOMNOLENCE [None]
